FAERS Safety Report 9071425 (Version 1)
Quarter: 2013Q1

REPORT INFORMATION
  Report Type: Spontaneous
  Country: US (occurrence: US)
  Receive Date: 20130129
  Receipt Date: 20130129
  Transmission Date: 20140127
  Serious: Yes (Hospitalization, Other)
  Sender: FDA-Public Use
  Company Number: US-AMGEN-USASP2011046366

PATIENT
  Sex: Female

DRUGS (1)
  1. ENBREL [Suspect]
     Indication: RHEUMATOID ARTHRITIS
     Dosage: 25 MG, 2 TIMES/WK
     Route: 058
     Dates: start: 20110824, end: 20110906

REACTIONS (4)
  - Ejection fraction decreased [Unknown]
  - Ventricular fibrillation [Unknown]
  - Coronary artery disease [Unknown]
  - Cardiac failure congestive [Not Recovered/Not Resolved]
